FAERS Safety Report 16647394 (Version 3)
Quarter: 2019Q3

REPORT INFORMATION
  Report Type: Spontaneous
  Country: US (occurrence: US)
  Receive Date: 20190730
  Receipt Date: 20190920
  Transmission Date: 20191004
  Serious: No
  Sender: FDA-Public Use
  Company Number: US-PFIZER INC-2019317419

PATIENT
  Age: 65 Year
  Sex: Female
  Weight: 109.3 kg

DRUGS (2)
  1. EMBEDA [Suspect]
     Active Substance: MORPHINE SULFATE\NALTREXONE HYDROCHLORIDE
     Dosage: 1 DF, 1X/DAY (MORPHINE SULFATE/NALTREXONE HYDROCHLORIDE: 20 MG/0.8 MG)
     Route: 048
     Dates: start: 20190705, end: 20190715
  2. EMBEDA [Suspect]
     Active Substance: MORPHINE SULFATE\NALTREXONE HYDROCHLORIDE
     Dosage: UNK
     Dates: end: 20190706

REACTIONS (4)
  - Scratch [Unknown]
  - Pruritus [Unknown]
  - Middle insomnia [Unknown]
  - Skin abrasion [Unknown]

NARRATIVE: CASE EVENT DATE: 2019
